FAERS Safety Report 17134559 (Version 1)
Quarter: 2019Q4

REPORT INFORMATION
  Report Type: Spontaneous
  Country: FR (occurrence: FR)
  Receive Date: 20191210
  Receipt Date: 20191210
  Transmission Date: 20200122
  Serious: Yes (Hospitalization)
  Sender: FDA-Public Use
  Company Number: FR-PFIZER INC-2019525566

PATIENT
  Age: 61 Year
  Sex: Female
  Weight: 60 kg

DRUGS (9)
  1. TRANXENE [Concomitant]
     Active Substance: CLORAZEPATE DIPOTASSIUM
     Indication: PREMEDICATION
     Dosage: 10 MG, CYCLIC
     Route: 042
  2. EMEND [Concomitant]
     Active Substance: APREPITANT
     Indication: PREMEDICATION
     Dosage: UNK
     Route: 048
  3. ZOPHREN [ONDANSETRON HYDROCHLORIDE] [Concomitant]
     Active Substance: ONDANSETRON
     Indication: PREMEDICATION
     Dosage: 8 MG, CYCLIC
     Route: 042
  4. DOXYCYCLINE. [Concomitant]
     Active Substance: DOXYCYCLINE
     Indication: PROPHYLAXIS
     Dosage: 100 MG, 1X/DAY
     Route: 048
  5. SOLU-MEDROL [Suspect]
     Active Substance: METHYLPREDNISOLONE SODIUM SUCCINATE
     Indication: PREMEDICATION
     Dosage: 60 MG, CYCLIC
     Route: 041
     Dates: start: 20190702, end: 20190702
  6. FLUOROURACIL. [Suspect]
     Active Substance: FLUOROURACIL
     Indication: ADENOCARCINOMA OF COLON
     Dosage: 625 MG, CYCLIC (625 MG IN BOLUS AND 2900 MG IN)
     Route: 041
     Dates: start: 20190702, end: 20190704
  7. VECTIBIX [Suspect]
     Active Substance: PANITUMUMAB
     Indication: ADENOCARCINOMA OF COLON
     Dosage: 270 MG, UNK
     Route: 041
     Dates: start: 20190702, end: 20190702
  8. POLARAMINE [Suspect]
     Active Substance: DEXCHLORPHENIRAMINE MALEATE
     Indication: PREMEDICATION
     Dosage: 10 MG, CYCLIC
     Route: 041
     Dates: start: 20190702, end: 20190702
  9. CALCIUM FOLINATE [Suspect]
     Active Substance: LEUCOVORIN CALCIUM
     Indication: ADENOCARCINOMA OF COLON
     Dosage: 640 MG, CYCLIC
     Route: 041
     Dates: start: 20190702, end: 20190702

REACTIONS (2)
  - Generalised tonic-clonic seizure [Recovered/Resolved]
  - Petit mal epilepsy [Recovered/Resolved]

NARRATIVE: CASE EVENT DATE: 20190702
